FAERS Safety Report 8458189-3 (Version None)
Quarter: 2012Q2

REPORT INFORMATION
  Report Type: 
  Country: None (occurrence: None)
  Receive Date: 20120622
  Receipt Date: 20120620
  Transmission Date: 20120825
  Serious: No
  Sender: FDA-Public Use
  Company Number: US-BAYER-2012-061428

PATIENT
  Age: 72 Year
  Sex: Female
  Weight: 58 kg

DRUGS (3)
  1. ALEVE (CAPLET) [Suspect]
     Indication: BACK PAIN
     Dosage: 1 DF, BID
     Route: 048
     Dates: start: 20120620, end: 20120620
  2. MULTI-VITAMIN [Concomitant]
  3. VITAMIN B COMPLEX CAP [Concomitant]

REACTIONS (1)
  - PAIN [None]
